FAERS Safety Report 22325681 (Version 1)
Quarter: 2023Q2

REPORT INFORMATION
  Report Type: Spontaneous
  Country: CN (occurrence: CN)
  Receive Date: 20230516
  Receipt Date: 20230516
  Transmission Date: 20230721
  Serious: Yes (Other)
  Sender: FDA-Public Use
  Company Number: None

PATIENT
  Age: 72 Year
  Sex: Female

DRUGS (2)
  1. MANNITOL [Suspect]
     Active Substance: MANNITOL
     Indication: Cranial nerve neoplasm benign
     Dosage: 125 MILLILITERS (ML), 4 TIMES DAILY (DOSAGE FORM: INJECTION)
     Route: 041
     Dates: start: 20230427, end: 20230428
  2. MANNITOL [Suspect]
     Active Substance: MANNITOL
     Indication: Diuretic therapy

REACTIONS (1)
  - Hypokalaemia [Recovered/Resolved]

NARRATIVE: CASE EVENT DATE: 20230428
